FAERS Safety Report 5649026-0 (Version None)
Quarter: 2008Q1

REPORT INFORMATION
  Report Type: 
  Country: None (occurrence: None)
  Receive Date: 20080303
  Receipt Date: 20080303
  Transmission Date: 20080703
  Serious: Yes (Other)
  Sender: FDA-Public Use
  Company Number: None

PATIENT
  Age: 2 Month
  Sex: Female
  Weight: 2.7216 kg

DRUGS (1)
  1. CEFEPIME [Suspect]
     Indication: PSEUDOMONAS INFECTION
     Dosage: 5 ML   Q 12 HR   IV BOLUS
     Route: 040
     Dates: start: 20080223, end: 20080229

REACTIONS (7)
  - CHEST DISCOMFORT [None]
  - DYSPNOEA [None]
  - HEART RATE DECREASED [None]
  - INFUSION RELATED REACTION [None]
  - OXYGEN SATURATION DECREASED [None]
  - PALLOR [None]
  - RESPIRATORY DISORDER [None]
